FAERS Safety Report 11201507 (Version 1)
Quarter: 2015Q2

REPORT INFORMATION
  Report Type: Report from Study
  Country: CO (occurrence: CO)
  Receive Date: 20150619
  Receipt Date: 20150619
  Transmission Date: 20150821
  Serious: Yes (Hospitalization)
  Sender: FDA-Public Use
  Company Number: CO-EMD SERONO-8030519

PATIENT
  Sex: Male
  Weight: 28 kg

DRUGS (3)
  1. SAIZEN [Suspect]
     Active Substance: SOMATROPIN
     Route: 058
     Dates: start: 20150520, end: 20150609
  2. SAIZEN [Suspect]
     Active Substance: SOMATROPIN
     Indication: BODY HEIGHT BELOW NORMAL
     Route: 058
     Dates: start: 20140614, end: 201504
  3. SAIZEN [Suspect]
     Active Substance: SOMATROPIN
     Dosage: INJECTED FOR 8 DAYS
     Route: 058

REACTIONS (2)
  - Off label use [Unknown]
  - Intestinal strangulation [Unknown]

NARRATIVE: CASE EVENT DATE: 2015
